FAERS Safety Report 8096106-9 (Version None)
Quarter: 2012Q1

REPORT INFORMATION
  Report Type: 
  Country: None (occurrence: None)
  Receive Date: 20120131
  Receipt Date: 20120125
  Transmission Date: 20120608
  Serious: Yes (Death, Hospitalization)
  Sender: FDA-Public Use
  Company Number: US-GLAXOSMITHKLINE-A0907790A

PATIENT
  Age: 66 Year
  Sex: Female
  Weight: 204.5 kg

DRUGS (5)
  1. ZOCOR [Concomitant]
  2. ZESTRIL [Concomitant]
  3. GLUCOVANCE [Concomitant]
  4. INSULIN [Concomitant]
  5. AVANDIA [Suspect]
     Indication: DIABETES MELLITUS
     Dosage: 8MG PER DAY
     Route: 048
     Dates: start: 20050114

REACTIONS (4)
  - CARDIOPULMONARY FAILURE [None]
  - RENAL FAILURE ACUTE [None]
  - CARDIOVASCULAR DISORDER [None]
  - CARDIAC FAILURE CONGESTIVE [None]
